FAERS Safety Report 25255802 (Version 2)
Quarter: 2025Q2

REPORT INFORMATION
  Report Type: Spontaneous
  Country: US (occurrence: US)
  Receive Date: 20250430
  Receipt Date: 20250618
  Transmission Date: 20250717
  Serious: Yes (Other)
  Sender: Karo Pharma
  Company Number: US-Karo Pharma-2175839

PATIENT
  Age: 57 Year

DRUGS (8)
  1. LAMISIL [Suspect]
     Active Substance: TERBINAFINE HYDROCHLORIDE
     Indication: Psoriasis
  2. CALCIPOTRIENE [Suspect]
     Active Substance: CALCIPOTRIENE
  3. DESONIDE [Suspect]
     Active Substance: DESONIDE
  4. TRIAMCINOLONE [Suspect]
     Active Substance: TRIAMCINOLONE
  5. DOXYCYCLINE [Suspect]
     Active Substance: DOXYCYCLINE
  6. PREDNISONE [Suspect]
     Active Substance: PREDNISONE
  7. LAMISIL [Suspect]
     Active Substance: TERBINAFINE HYDROCHLORIDE
  8. CLOBETASOL [Suspect]
     Active Substance: CLOBETASOL

REACTIONS (20)
  - Rash vesicular [Unknown]
  - Dermal cyst [Unknown]
  - Rash pruritic [Unknown]
  - Musculoskeletal stiffness [Unknown]
  - Arthralgia [Unknown]
  - Onycholysis [Unknown]
  - Skin exfoliation [Unknown]
  - Seborrhoeic dermatitis [Unknown]
  - Psoriatic arthropathy [Unknown]
  - Psoriasis [Unknown]
  - Drug ineffective [Unknown]
  - Eczema nummular [Unknown]
  - Rash [Unknown]
  - Nail disorder [Unknown]
  - Fibrous histiocytoma [Unknown]
  - Skin plaque [Unknown]
  - Rosacea [Unknown]
  - Eczema [Unknown]
  - Nail pitting [Unknown]
  - Onychomycosis [Unknown]
